FAERS Safety Report 10584110 (Version 1)
Quarter: 2014Q4

REPORT INFORMATION
  Report Type: Spontaneous
  Country: US (occurrence: None)
  Receive Date: 20141113
  Receipt Date: 20141113
  Transmission Date: 20150529
  Serious: Yes (Disabling, Other)
  Sender: FDA-Public Use
  Company Number: None

PATIENT
  Age: 52 Year
  Sex: Female
  Weight: 88.45 kg

DRUGS (8)
  1. CIPROFLOXACIN. [Suspect]
     Active Substance: CIPROFLOXACIN
     Indication: DIVERTICULITIS
     Dosage: 1   2X DAILY BY MOUTH
     Route: 048
     Dates: start: 20080725
  2. GRAPEFRUIT SEED EXTRACT [Concomitant]
     Active Substance: GRAPEFRUIT SEED EXTRACT
  3. B VITAMINS [Concomitant]
  4. C VITAMINS [Concomitant]
  5. MAGNESIUM [Concomitant]
     Active Substance: MAGNESIUM
  6. HERBAL TEAS [Concomitant]
     Active Substance: HERBALS
  7. SLIPPERY ELM [Concomitant]
  8. PROBIOTICS [Concomitant]
     Active Substance: PROBIOTICS NOS

REACTIONS (15)
  - Mobility decreased [None]
  - Anxiety [None]
  - Tremor [None]
  - Joint range of motion decreased [None]
  - Tendonitis [None]
  - Nausea [None]
  - Pain [None]
  - Depression [None]
  - Pain in extremity [None]
  - Musculoskeletal disorder [None]
  - Joint swelling [None]
  - Activities of daily living impaired [None]
  - Asthenia [None]
  - Feeling of despair [None]
  - Arthropathy [None]

NARRATIVE: CASE EVENT DATE: 20080725
